FAERS Safety Report 6451437-0 (Version None)
Quarter: 2009Q4

REPORT INFORMATION
  Report Type: 
  Country: None (occurrence: None)
  Receive Date: 20091123
  Receipt Date: 20090105
  Transmission Date: 20100525
  Serious: No
  Sender: FDA-Public Use
  Company Number: US-BRISTOL-MYERS SQUIBB COMPANY-14390272

PATIENT
  Age: 90 Year
  Sex: Female
  Weight: 59 kg

DRUGS (6)
  1. AVALIDE [Suspect]
     Dosage: INITIALLY 150MG AND INCREASED TO 1 DF- 300MG/12.5MG; LOT #: 6H2152A.  EXPIRATION DATE: 08/2009.
  2. ACIPHEX [Concomitant]
  3. LUNESTA [Concomitant]
  4. ATENOLOL [Concomitant]
  5. HYDROCODONE [Concomitant]
  6. AMLODIPINE BESYLATE+BENAZEPRIL HCL [Concomitant]
     Dosage: 10MG/20MG

REACTIONS (1)
  - BLOOD PRESSURE INCREASED [None]
